FAERS Safety Report 12925839 (Version 1)
Quarter: 2016Q4

REPORT INFORMATION
  Report Type: Spontaneous
  Country: US (occurrence: US)
  Receive Date: 20161108
  Receipt Date: 20161108
  Transmission Date: 20170207
  Serious: No
  Sender: FDA-Public Use
  Company Number: US-SA-2016SA190713

PATIENT
  Age: 81 Year
  Sex: Male

DRUGS (2)
  1. ALIROCUMAB PREFILLED PEN [Concomitant]
     Active Substance: ALIROCUMAB
     Dosage: FREQUENCY- TWICE A MONTH
     Dates: start: 20160721, end: 20160915
  2. PRALUENT [Suspect]
     Active Substance: ALIROCUMAB
     Indication: HYPERLIPIDAEMIA
     Dosage: FREQUENCY- TWICE A MONTH
     Route: 058
     Dates: start: 20160721, end: 20160915

REACTIONS (3)
  - Bronchitis [Recovering/Resolving]
  - Cough [Recovering/Resolving]
  - Laryngitis [Unknown]

NARRATIVE: CASE EVENT DATE: 2016
